FAERS Safety Report 5814984-8 (Version None)
Quarter: 2008Q3

REPORT INFORMATION
  Report Type: 
  Country: None (occurrence: None)
  Receive Date: 20080718
  Receipt Date: 20080708
  Transmission Date: 20090109
  Serious: Yes (Other)
  Sender: FDA-Public Use
  Company Number: A0616022A

PATIENT
  Age: 28 Year
  Sex: Female

DRUGS (2)
  1. WELLBUTRIN [Suspect]
     Dosage: 100MG PER DAY
     Route: 048
     Dates: start: 20060301
  2. ORAL CONTRACEPTIVE [Concomitant]

REACTIONS (7)
  - ACUTE PSYCHOSIS [None]
  - FEAR [None]
  - HALLUCINATION, AUDITORY [None]
  - PANIC ATTACK [None]
  - PARANOIA [None]
  - SELF-INJURIOUS IDEATION [None]
  - SUICIDAL IDEATION [None]
